FAERS Safety Report 5293325-1 (Version None)
Quarter: 2007Q1

REPORT INFORMATION
  Report Type: 
  Country: None (occurrence: None)
  Receive Date: 20070116
  Receipt Date: 20060228
  Transmission Date: 20070707
  Serious: Yes (Other)
  Sender: FDA-Public Use
  Company Number: HQWYE935516AUG05

PATIENT
  Age: 59 Year
  Sex: Female
  Weight: 74.91 kg

DRUGS (8)
  1. PREMPRO [Suspect]
     Indication: HORMONE REPLACEMENT THERAPY
  2. ACTIVELLA [Suspect]
  3. CYCRIN [Suspect]
  4. ESTRADERM [Suspect]
  5. NORETHINDRONE (NORETHINDRONE, ) [Suspect]
  6. PREMARIN [Suspect]
  7. PROMETRIUM [Suspect]
  8. VIVELLE [Suspect]

REACTIONS (1)
  - BREAST CANCER [None]
